FAERS Safety Report 6907756-4 (Version None)
Quarter: 2010Q3

REPORT INFORMATION
  Report Type: 
  Country: None (occurrence: None)
  Receive Date: 20100805
  Receipt Date: 20100706
  Transmission Date: 20110219
  Serious: Yes (Other)
  Sender: FDA-Public Use
  Company Number: US-SANOFI-AVENTIS-2010SA023014

PATIENT
  Sex: Male

DRUGS (3)
  1. SOLOSTAR [Suspect]
  2. LANTUS [Suspect]
     Dosage: DOSE:27 UNIT(S)
     Route: 058
     Dates: start: 20070101
  3. LANTUS [Suspect]
     Route: 058

REACTIONS (1)
  - DEVICE MALFUNCTION [None]
